FAERS Safety Report 9331078 (Version 1)
Quarter: 2013Q2

REPORT INFORMATION
  Report Type: Spontaneous
  Country: US (occurrence: US)
  Receive Date: 20130605
  Receipt Date: 20130605
  Transmission Date: 20140414
  Serious: No
  Sender: FDA-Public Use
  Company Number: US-ASTRAZENECA-2013SE37148

PATIENT
  Age: 60 Year
  Sex: Male

DRUGS (10)
  1. ATACAND [Suspect]
     Route: 048
  2. CRESTOR [Suspect]
     Route: 048
  3. BRILINTA [Suspect]
     Indication: ACUTE CORONARY SYNDROME
     Route: 048
     Dates: start: 20130510, end: 20130521
  4. PLAVIX [Suspect]
     Route: 065
  5. PLAVIX [Suspect]
     Route: 065
  6. ASA [Concomitant]
  7. DISTOLIC [Concomitant]
  8. LASIX [Concomitant]
  9. POTASSIUM [Concomitant]
  10. NITROSTAT [Concomitant]
     Dosage: PRN

REACTIONS (2)
  - Dyspnoea [Unknown]
  - Drug ineffective [Unknown]
